FAERS Safety Report 8196604-3 (Version None)
Quarter: 2012Q1

REPORT INFORMATION
  Report Type: 
  Country: None (occurrence: None)
  Receive Date: 20120309
  Receipt Date: 20120301
  Transmission Date: 20120608
  Serious: Yes (Hospitalization)
  Sender: FDA-Public Use
  Company Number: US-BAYER-2011-073586

PATIENT
  Age: 26 Year
  Sex: Female
  Weight: 68.027 kg

DRUGS (1)
  1. YASMIN [Suspect]
     Dosage: UNK
     Dates: start: 20080901, end: 20091001

REACTIONS (7)
  - ANXIETY [None]
  - GENERAL PHYSICAL HEALTH DETERIORATION [None]
  - EMOTIONAL DISTRESS [None]
  - ANHEDONIA [None]
  - CHOLECYSTITIS ACUTE [None]
  - GALLBLADDER INJURY [None]
  - PAIN [None]
